FAERS Safety Report 15196428 (Version 1)
Quarter: 2018Q3

REPORT INFORMATION
  Report Type: Spontaneous
  Country: US (occurrence: US)
  Receive Date: 20180626
  Receipt Date: 20180626
  Transmission Date: 20181010
  Serious: No
  Sender: FDA-Public Use
  Company Number: None

PATIENT
  Age: 53 Year
  Sex: Female
  Weight: 62.55 kg

DRUGS (1)
  1. DULOXETINE HCL DR CAP 30 MG/ GENERIC FOR CYMBALTA [Suspect]
     Active Substance: DULOXETINE HYDROCHLORIDE
     Indication: FIBROMYALGIA
     Dosage: ?          QUANTITY:1 CAPSULE(S);?
     Route: 048
     Dates: start: 20160924

REACTIONS (11)
  - Nausea [None]
  - Tinnitus [None]
  - Impaired work ability [None]
  - Headache [None]
  - Adverse drug reaction [None]
  - Head discomfort [None]
  - Heart rate decreased [None]
  - Loss of personal independence in daily activities [None]
  - Heart rate increased [None]
  - Fatigue [None]
  - Insomnia [None]

NARRATIVE: CASE EVENT DATE: 20180526
